FAERS Safety Report 9108449 (Version 1)
Quarter: 2013Q1

REPORT INFORMATION
  Report Type: Spontaneous
  Country: BR (occurrence: BR)
  Receive Date: 20130222
  Receipt Date: 20130222
  Transmission Date: 20140127
  Serious: Yes (Other)
  Sender: FDA-Public Use
  Company Number: PHHY2012BR099841

PATIENT
  Sex: Male
  Weight: 21 kg

DRUGS (4)
  1. RITALINA [Suspect]
     Dosage: 0.5 DF, QD
  2. RITALINA [Suspect]
     Indication: ATTENTION DEFICIT/HYPERACTIVITY DISORDER
     Dosage: 0.5 DF, DAILY
     Route: 048
     Dates: start: 201207
  3. RITALINA [Suspect]
     Dosage: 1 DF, DAILY
     Dates: end: 201209
  4. RITALINA [Suspect]
     Dosage: 1 DF, DAILY
     Dates: start: 20121026, end: 20121026

REACTIONS (6)
  - Dyspnoea [Recovering/Resolving]
  - Arrhythmia [Recovered/Resolved]
  - Agitation [Not Recovered/Not Resolved]
  - Fatigue [Not Recovered/Not Resolved]
  - Nausea [Recovered/Resolved]
  - Nervousness [Not Recovered/Not Resolved]
